FAERS Safety Report 8946839 (Version 1)
Quarter: 2012Q4

REPORT INFORMATION
  Report Type: 
  Country: US (occurrence: US)
  Receive Date: 20121205
  Receipt Date: 20121205
  Transmission Date: 20130627
  Serious: Yes (Other)
  Sender: FDA-Public Use
  Company Number: US-GLAXOSMITHKLINE-A1003226A

PATIENT
  Age: 52 Year
  Sex: Male

DRUGS (11)
  1. ADVAIR [Suspect]
     Indication: CHRONIC OBSTRUCTIVE PULMONARY DISEASE
     Dosage: 1PUFF Twice per day
     Route: 055
     Dates: start: 200710
  2. VENTOLIN [Suspect]
     Indication: CHRONIC OBSTRUCTIVE PULMONARY DISEASE
     Dosage: 2PUFF Unknown
     Route: 055
     Dates: start: 200710
  3. OMEGA-3 [Concomitant]
  4. OMEPRAZOLE [Concomitant]
  5. SIMVASTATIN [Concomitant]
  6. XALATAN [Concomitant]
  7. AZOPT [Concomitant]
  8. VITAMIN D [Concomitant]
  9. ZITHROMAX [Concomitant]
  10. AMPICILLIN [Concomitant]
  11. PROTONIX [Concomitant]

REACTIONS (2)
  - Glaucoma [Unknown]
  - Visual acuity reduced [Unknown]
